FAERS Safety Report 6097860-8 (Version None)
Quarter: 2009Q1

REPORT INFORMATION
  Report Type: 
  Country: None (occurrence: None)
  Receive Date: 20090227
  Receipt Date: 20090219
  Transmission Date: 20090719
  Serious: Yes (Other)
  Sender: FDA-Public Use
  Company Number: GB-ASTRAZENECA-2009GB00506

PATIENT
  Age: 25 Year
  Sex: Female

DRUGS (3)
  1. OMEPRAZOLE [Suspect]
     Indication: GASTRIC PH DECREASED
     Dosage: 20 MG
     Route: 048
     Dates: start: 20090202, end: 20090202
  2. OMEPRAZOLE [Suspect]
     Indication: DYSPEPSIA
     Dosage: 20 MG
     Route: 048
     Dates: start: 20090202, end: 20090202
  3. SALBUTAMOL [Concomitant]
     Indication: ASTHMA
     Route: 055

REACTIONS (2)
  - ANXIETY [None]
  - LIP SWELLING [None]
